FAERS Safety Report 9566187 (Version 1)
Quarter: 2013Q3

REPORT INFORMATION
  Report Type: Spontaneous
  Country: US (occurrence: US)
  Receive Date: 20130930
  Receipt Date: 20130930
  Transmission Date: 20140515
  Serious: No
  Sender: FDA-Public Use
  Company Number: US-ASTRAZENECA-2013SE57272

PATIENT
  Age: 72 Year
  Sex: Male
  Weight: 96.2 kg

DRUGS (2)
  1. BRILINTA [Suspect]
     Indication: STENT PLACEMENT
     Route: 048
     Dates: start: 201304
  2. ASPIRIN [Suspect]
     Indication: STENT PLACEMENT
     Route: 048
     Dates: start: 201304

REACTIONS (7)
  - Musculoskeletal disorder [Unknown]
  - Activities of daily living impaired [Unknown]
  - Arthralgia [Unknown]
  - Arthritis [Unknown]
  - Synovial cyst [Unknown]
  - Laceration [Unknown]
  - Haemorrhage [Unknown]
